FAERS Safety Report 8893829 (Version 3)
Quarter: 2013Q1

REPORT INFORMATION
  Report Type: Spontaneous
  Country: US (occurrence: US)
  Receive Date: 20121107
  Receipt Date: 20130208
  Transmission Date: 20140127
  Serious: Yes (Hospitalization, Other)
  Sender: FDA-Public Use
  Company Number: US-AMGEN-USASP2011056379

PATIENT
  Age: 73 Year
  Sex: Female
  Weight: 97.05 kg

DRUGS (12)
  1. ENBREL [Suspect]
     Indication: RHEUMATOID ARTHRITIS
     Dosage: 50 MG, QWK
     Route: 058
     Dates: start: 20080101, end: 201212
  2. ZOLOFT [Concomitant]
     Dosage: 50 MG, UNK
  3. METHOTREXATE [Concomitant]
     Dosage: 2.5 MG, UNK
  4. NORVASC [Concomitant]
     Dosage: 5 MG, UNK
  5. SYNTHROID [Concomitant]
     Dosage: 50 MUG, UNK
  6. ATENOLOL [Concomitant]
     Dosage: 50 MG, UNK
  7. PREVACID [Concomitant]
     Dosage: 15 MG, UNK
  8. AEROBID [Concomitant]
     Dosage: 250 MUG, UNK AER
  9. CYANOCOBALAMIN [Concomitant]
     Dosage: 1000 MUG, UNK
  10. FERROUS SULFATE [Concomitant]
     Dosage: 324 MG, UNK
  11. VITAMIN C [Concomitant]
     Dosage: 500 MG, UNK CR
  12. LIDODERM [Concomitant]
     Dosage: 5 %, UNK DIS

REACTIONS (10)
  - Colon cancer [Recovered/Resolved]
  - Abdominal pain upper [Recovered/Resolved]
  - Diarrhoea [Not Recovered/Not Resolved]
  - Nausea [Not Recovered/Not Resolved]
  - Vomiting [Recovered/Resolved]
  - Full blood count decreased [Not Recovered/Not Resolved]
  - Anaemia [Not Recovered/Not Resolved]
  - Rheumatoid arthritis [Not Recovered/Not Resolved]
  - Pain [Not Recovered/Not Resolved]
  - Tooth abscess [Recovered/Resolved]
